FAERS Safety Report 8313754-9 (Version None)
Quarter: 2012Q2

REPORT INFORMATION
  Report Type: 
  Country: None (occurrence: None)
  Receive Date: 20120426
  Receipt Date: 20110808
  Transmission Date: 20120825
  Serious: Yes (Other)
  Sender: FDA-Public Use
  Company Number: US-TEVA-US019860

PATIENT
  Age: 54 Year
  Sex: Female
  Weight: 55 kg

DRUGS (7)
  1. PROVIGIL [Suspect]
     Dosage: 200 MILLIGRAM;
     Route: 048
  2. KLONOPIN [Concomitant]
     Indication: ANXIETY
     Dosage: 2-3MG QD
     Route: 048
  3. PROVIGIL [Suspect]
     Dosage: 100 MILLIGRAM;
     Route: 048
  4. XANAX [Concomitant]
     Indication: ANXIETY
     Route: 048
  5. PROVIGIL [Suspect]
     Indication: FATIGUE
     Dosage: 50 MILLIGRAM;
     Route: 048
  6. PROVIGIL [Suspect]
     Dosage: 200MG QAM/100MG QPM
     Route: 048
     Dates: end: 20070301
  7. THYROID TAB [Concomitant]
     Indication: THYROID DISORDER
     Dosage: 2.5 GRAM;
     Route: 048
     Dates: start: 20040101

REACTIONS (6)
  - ANXIETY [None]
  - HOSTILITY [None]
  - PSYCHOTIC DISORDER [None]
  - WITHDRAWAL SYNDROME [None]
  - SUICIDAL IDEATION [None]
  - EAR PAIN [None]
